FAERS Safety Report 19333102 (Version 1)
Quarter: 2021Q2

REPORT INFORMATION
  Report Type: Report from Study
  Country: US (occurrence: US)
  Receive Date: 20210529
  Receipt Date: 20210529
  Transmission Date: 20210717
  Serious: Yes (Other)
  Sender: FDA-Public Use
  Company Number: US-UCBSA-2021024331

PATIENT
  Age: 64 Year
  Sex: Female

DRUGS (2)
  1. CERTOLIZUMAB PEGOL [Suspect]
     Active Substance: CERTOLIZUMAB PEGOL
     Indication: PSORIATIC ARTHROPATHY
     Dosage: 400 MILLIGRAM, EV 4 WEEKS
     Dates: start: 20210504
  2. PREDNISONE. [Concomitant]
     Active Substance: PREDNISONE
     Indication: PRODUCT USED FOR UNKNOWN INDICATION
     Dosage: UNK
     Dates: start: 20210506

REACTIONS (7)
  - Anaphylactic reaction [Not Recovered/Not Resolved]
  - COVID-19 immunisation [Unknown]
  - Psoriatic arthropathy [Not Recovered/Not Resolved]
  - Fatigue [Not Recovered/Not Resolved]
  - Product prescribing issue [Unknown]
  - Decreased appetite [Not Recovered/Not Resolved]
  - Vaccination complication [Not Recovered/Not Resolved]

NARRATIVE: CASE EVENT DATE: 20210503
